FAERS Safety Report 4864220-4 (Version None)
Quarter: 2005Q4

REPORT INFORMATION
  Report Type: 
  Country: None (occurrence: None)
  Receive Date: 20051220
  Receipt Date: 20051220
  Transmission Date: 20060501
  Serious: No
  Sender: FDA-Public Use
  Company Number: None

PATIENT
  Age: 53 Year
  Sex: Female
  Weight: 77.1115 kg

DRUGS (1)
  1. EFFEXOR XR [Suspect]

REACTIONS (3)
  - CARDIAC FLUTTER [None]
  - HALLUCINATION [None]
  - VENTRICULAR EXTRASYSTOLES [None]
